FAERS Safety Report 4790333-1 (Version None)
Quarter: 2005Q4

REPORT INFORMATION
  Report Type: 
  Country: None (occurrence: None)
  Receive Date: 20051005
  Receipt Date: 20050923
  Transmission Date: 20060501
  Serious: Yes (Other)
  Sender: FDA-Public Use
  Company Number: 27550

PATIENT
  Age: 70 Year
  Sex: Male

DRUGS (2)
  1. ALDARA [Suspect]
     Indication: ACTINIC KERATOSIS
     Dosage: (1 SACHET, 2 IN 1 WEEK(S), TOPICAL
     Route: 061
     Dates: start: 20050401, end: 20050701
  2. LIPITOR [Concomitant]

REACTIONS (4)
  - APPLICATION SITE REACTION [None]
  - DERMATITIS [None]
  - SKIN PAPILLOMA [None]
  - SQUAMOUS CELL CARCINOMA OF SKIN [None]
